FAERS Safety Report 5455390-8 (Version None)
Quarter: 2007Q3

REPORT INFORMATION
  Report Type: 
  Country: None (occurrence: None)
  Receive Date: 20070918
  Receipt Date: 20070228
  Transmission Date: 20080115
  Serious: Yes (Other)
  Sender: FDA-Public Use
  Company Number: US-ASTRAZENECA-2006UW21175

PATIENT
  Sex: Male
  Weight: 81.8 kg

DRUGS (5)
  1. SEROQUEL [Suspect]
     Indication: SCHIZOPHRENIA
     Dosage: 100MG - 300MG
     Route: 048
     Dates: start: 20031201, end: 20060701
  2. SEROQUEL [Suspect]
     Indication: DEPRESSION
     Dosage: 100MG - 300MG
     Route: 048
     Dates: start: 20031201, end: 20060701
  3. RISPERDAL [Suspect]
  4. ZYPREXA [Suspect]
  5. HALDOL [Concomitant]

REACTIONS (2)
  - HYPERGLYCAEMIA [None]
  - PANCREATITIS [None]
